FAERS Safety Report 12508325 (Version 5)
Quarter: 2016Q4

REPORT INFORMATION
  Report Type: Report from Study
  Country: US (occurrence: US)
  Receive Date: 20160629
  Receipt Date: 20161206
  Transmission Date: 20170207
  Serious: Yes (Hospitalization, Other)
  Sender: FDA-Public Use
  Company Number: US-GILEAD-2016-0220888

PATIENT
  Age: 83 Year
  Sex: Female
  Weight: 74.38 kg

DRUGS (23)
  1. RANITIDINE. [Concomitant]
     Active Substance: RANITIDINE
  2. SYNTHROID [Concomitant]
     Active Substance: LEVOTHYROXINE SODIUM
  3. CHOLECALCIFEROL [Concomitant]
     Active Substance: CHOLECALCIFEROL
  4. AMBRISENTAN [Suspect]
     Active Substance: AMBRISENTAN
     Indication: PULMONARY HYPERTENSION
     Dosage: 10 MG, QD
     Route: 048
  5. ELIQUIS [Concomitant]
     Active Substance: APIXABAN
  6. ALEVE [Concomitant]
     Active Substance: NAPROXEN SODIUM
  7. CLOTRIMAZOLE. [Concomitant]
     Active Substance: CLOTRIMAZOLE
  8. VICODIN [Concomitant]
     Active Substance: ACETAMINOPHEN\HYDROCODONE BITARTRATE
  9. METOPROLOL. [Concomitant]
     Active Substance: METOPROLOL
  10. LYRICA [Concomitant]
     Active Substance: PREGABALIN
  11. ASPIRIN                            /00002701/ [Concomitant]
     Active Substance: ASPIRIN
  12. IMODIUM [Concomitant]
     Active Substance: LOPERAMIDE HYDROCHLORIDE
  13. LEVOTHYROXINE. [Concomitant]
     Active Substance: LEVOTHYROXINE
  14. TYLENOL [Concomitant]
     Active Substance: ACETAMINOPHEN
  15. VITAMIN B12 [Concomitant]
     Active Substance: CYANOCOBALAMIN
  16. AMBRISENTAN [Suspect]
     Active Substance: AMBRISENTAN
     Indication: PICKWICKIAN SYNDROME
  17. SPIRIVA [Concomitant]
     Active Substance: TIOTROPIUM BROMIDE MONOHYDRATE
  18. AMBRISENTAN [Suspect]
     Active Substance: AMBRISENTAN
     Indication: CHRONIC OBSTRUCTIVE PULMONARY DISEASE
  19. DILTIAZEM. [Concomitant]
     Active Substance: DILTIAZEM
  20. ADVAIR HFA [Concomitant]
     Active Substance: FLUTICASONE PROPIONATE\SALMETEROL XINAFOATE
  21. KLOR-CON [Concomitant]
     Active Substance: POTASSIUM CHLORIDE
  22. LASIX [Concomitant]
     Active Substance: FUROSEMIDE
  23. OXYGEN. [Concomitant]
     Active Substance: OXYGEN

REACTIONS (11)
  - Dyspnoea [Not Recovered/Not Resolved]
  - Peripheral swelling [Not Recovered/Not Resolved]
  - Localised infection [Unknown]
  - Condition aggravated [Unknown]
  - Pulmonary embolism [Unknown]
  - Atrial flutter [Unknown]
  - Pneumonia [Unknown]
  - Atrial fibrillation [Not Recovered/Not Resolved]
  - Arthritis [Not Recovered/Not Resolved]
  - Fatigue [Not Recovered/Not Resolved]
  - Asthenia [Not Recovered/Not Resolved]
